FAERS Safety Report 23930858 (Version 2)
Quarter: 2024Q4

REPORT INFORMATION
  Report Type: Report from Study
  Country: CN (occurrence: CN)
  Receive Date: 20240603
  Receipt Date: 20241223
  Transmission Date: 20250114
  Serious: Yes (Other)
  Sender: ROCHE
  Company Number: CN-ROCHE-3569828

PATIENT
  Age: 67 Year
  Sex: Male

DRUGS (2)
  1. POLATUZUMAB VEDOTIN [Suspect]
     Active Substance: POLATUZUMAB VEDOTIN
     Indication: Diffuse large B-cell lymphoma
     Route: 041
  2. RITUXIMAB [Suspect]
     Active Substance: RITUXIMAB
     Indication: Diffuse large B-cell lymphoma
     Route: 042
     Dates: start: 20231122, end: 20231122

REACTIONS (6)
  - Blood potassium decreased [Unknown]
  - Blood calcium decreased [Recovered/Resolved]
  - Monocyte count decreased [Recovered/Resolved]
  - Anaemia [Unknown]
  - Lymphocyte count decreased [Unknown]
  - Blood magnesium decreased [Unknown]

NARRATIVE: CASE EVENT DATE: 20231124
